FAERS Safety Report 6252877-5 (Version None)
Quarter: 2009Q2

REPORT INFORMATION
  Report Type: 
  Country: None (occurrence: None)
  Receive Date: 20090629
  Receipt Date: 20090612
  Transmission Date: 20091009
  Serious: Yes (Other)
  Sender: FDA-Public Use
  Company Number: A-NJ2009-25529

PATIENT
  Age: 76 Year
  Sex: Female

DRUGS (3)
  1. TRACLEER [Suspect]
     Indication: PULMONARY ARTERIAL HYPERTENSION
     Dosage: 125MG, BID, ORAL; 62.5 MG, BID, ORAL. 62.5 MG, BID, ORAL
     Route: 048
     Dates: start: 20090507, end: 20090101
  2. TRACLEER [Suspect]
     Indication: PULMONARY ARTERIAL HYPERTENSION
     Dosage: 125MG, BID, ORAL; 62.5 MG, BID, ORAL. 62.5 MG, BID, ORAL
     Route: 048
     Dates: start: 20090101, end: 20090601
  3. TRACLEER [Suspect]
     Indication: PULMONARY ARTERIAL HYPERTENSION
     Dosage: 125MG, BID, ORAL; 62.5 MG, BID, ORAL. 62.5 MG, BID, ORAL
     Route: 048
     Dates: start: 20090601

REACTIONS (7)
  - ARTHRALGIA [None]
  - ASTHENIA [None]
  - JOINT SWELLING [None]
  - MUSCULOSKELETAL PAIN [None]
  - OEDEMA PERIPHERAL [None]
  - PAIN IN EXTREMITY [None]
  - SWELLING FACE [None]
